FAERS Safety Report 7370631-8 (Version None)
Quarter: 2011Q1

REPORT INFORMATION
  Report Type: 
  Country: None (occurrence: None)
  Receive Date: 20110323
  Receipt Date: 20110316
  Transmission Date: 20110831
  Serious: Yes (Hospitalization)
  Sender: FDA-Public Use
  Company Number: US-RB-021400-11

PATIENT
  Sex: Female

DRUGS (2)
  1. BUPRENORPHINE HYDROCHLORIDE [Suspect]
     Indication: DRUG DEPENDENCE
     Dosage: 4-8 MG DAILY
     Route: 060
     Dates: start: 20110122, end: 20110311
  2. SUBOXONE [Suspect]
     Indication: DRUG DEPENDENCE
     Dosage: 4-8 MG DAILY
     Route: 060
     Dates: start: 20100301, end: 20110121

REACTIONS (4)
  - OVARIAN CYST [None]
  - PREMATURE LABOUR [None]
  - DRUG EXPOSURE DURING PREGNANCY [None]
  - PAIN [None]
